FAERS Safety Report 9687314 (Version 1)
Quarter: 2013Q4

REPORT INFORMATION
  Report Type: Spontaneous
  Country: US (occurrence: US)
  Receive Date: 20131114
  Receipt Date: 20131114
  Transmission Date: 20140711
  Serious: No
  Sender: FDA-Public Use
  Company Number: US-009507513-1311USA000667

PATIENT
  Age: 54 Year
  Sex: Male

DRUGS (3)
  1. VICTRELIS [Suspect]
     Indication: HEPATITIS C
     Dosage: 800 MG, TID
     Route: 048
     Dates: start: 201310
  2. REBETOL [Suspect]
     Dosage: UNK
     Route: 048
     Dates: start: 20130917
  3. PEGASYS [Suspect]
     Dosage: UNK
     Dates: start: 20130917

REACTIONS (2)
  - Headache [Unknown]
  - Fatigue [Unknown]
